FAERS Safety Report 5273028-X (Version None)
Quarter: 2007Q1

REPORT INFORMATION
  Report Type: 
  Country: None (occurrence: None)
  Receive Date: 20070322
  Receipt Date: 20070307
  Transmission Date: 20070707
  Serious: Yes (Other)
  Sender: FDA-Public Use
  Company Number: US-SHR-US-2007-003328

PATIENT
  Age: 39 Year
  Sex: Female
  Weight: 52.154 kg

DRUGS (13)
  1. BETASERON [Suspect]
     Indication: RELAPSING-REMITTING MULTIPLE SCLEROSIS
     Dosage: 8 MIU, EVERY 2D
     Route: 058
     Dates: start: 20040605
  2. BACLOFEN [Concomitant]
     Dosage: 40 MG, 3X/DAY
  3. NEURONTIN [Concomitant]
     Dosage: 300 MG, 3X/DAY
  4. PROZAC [Concomitant]
     Dosage: 20 MG, 1X/DAY
  5. VALIUM [Concomitant]
     Dosage: 5 MG, AS REQ'D X3
  6. ADDERALL 10 [Concomitant]
     Dosage: 20 MG, 3X/DAY
  7. MIRALAX [Concomitant]
     Dosage: 17 G, 1X/DAY
  8. ASACOL [Concomitant]
     Dosage: 4800 MG, UNK
  9. ATROVENT [Concomitant]
     Dosage: UNK, AS REQ'D
     Route: 045
  10. NASONEX [Concomitant]
     Dosage: 200 MG, BED T.
  11. FOLIC ACID [Concomitant]
     Dosage: 1 MG, 1X/DAY
  12. METHOTREXATE [Concomitant]
     Dosage: 2.5 MG, 4X/WEEK
  13. MULTI-VITAMINS [Concomitant]
     Dosage: UNK, 1X/DAY

REACTIONS (4)
  - ARTHRITIS ENTEROPATHIC [None]
  - BACTERIA URINE IDENTIFIED [None]
  - VASCULITIS [None]
  - WEGENER'S GRANULOMATOSIS [None]
